FAERS Safety Report 10678679 (Version 2)
Quarter: 2015Q2

REPORT INFORMATION
  Report Type: Spontaneous
  Country: DE (occurrence: DE)
  Receive Date: 20141229
  Receipt Date: 20150401
  Transmission Date: 20150821
  Serious: Yes (Hospitalization, Other)
  Sender: FDA-Public Use
  Company Number: DE-JNJFOC-20141212821

PATIENT
  Age: 86 Year
  Sex: Male
  Weight: 80 kg

DRUGS (3)
  1. XARELTO [Suspect]
     Active Substance: RIVAROXABAN
     Indication: CEREBROVASCULAR ACCIDENT PROPHYLAXIS
     Route: 048
  2. XARELTO [Suspect]
     Active Substance: RIVAROXABAN
     Indication: ATRIAL FIBRILLATION
     Route: 048
  3. WARFARIN [Concomitant]
     Active Substance: WARFARIN
     Indication: PRODUCT USED FOR UNKNOWN INDICATION
     Route: 065

REACTIONS (8)
  - Haematuria [Recovered/Resolved]
  - Haematuria [Recovered/Resolved]
  - International normalised ratio abnormal [Unknown]
  - Gastrointestinal haemorrhage [Recovered/Resolved]
  - Haematochezia [Unknown]
  - Rectal haemorrhage [Unknown]
  - Coagulopathy [Recovering/Resolving]
  - Haemorrhagic diathesis [Recovered/Resolved]

NARRATIVE: CASE EVENT DATE: 201411
